FAERS Safety Report 23957420 (Version 1)
Quarter: 2024Q2

REPORT INFORMATION
  Report Type: Spontaneous
  Country: FR (occurrence: FR)
  Receive Date: 20240610
  Receipt Date: 20240610
  Transmission Date: 20240716
  Serious: Yes (Other)
  Sender: FDA-Public Use
  Company Number: None

PATIENT
  Age: 76 Year
  Sex: Female

DRUGS (12)
  1. PRIVIGEN [Suspect]
     Active Substance: HUMAN IMMUNOGLOBULIN G
     Indication: Polyneuropathy
     Dosage: UNK UNK, QMT
     Route: 042
     Dates: start: 20230303, end: 20230409
  2. LOVENOX [Concomitant]
     Active Substance: ENOXAPARIN SODIUM
     Route: 058
  3. PREDNISONE [Concomitant]
     Active Substance: PREDNISONE
     Route: 048
  4. MINERAL OIL [Concomitant]
     Active Substance: MINERAL OIL
     Route: 048
  5. INSULIN GLARGINE [Concomitant]
     Active Substance: INSULIN GLARGINE
  6. PHLOROGLUCIN [Concomitant]
  7. LAMOTRIGINE [Concomitant]
     Active Substance: LAMOTRIGINE
  8. BRIVIACT [Concomitant]
     Active Substance: BRIVARACETAM
  9. LACOSAMIDE [Concomitant]
     Active Substance: LACOSAMIDE
  10. HUMALOG [Concomitant]
     Active Substance: INSULIN LISPRO
     Route: 058
  11. CENOBAMATE [Concomitant]
     Active Substance: CENOBAMATE
     Route: 048
  12. CLONAZEPAM [Concomitant]
     Active Substance: CLONAZEPAM
     Route: 042

REACTIONS (2)
  - Epilepsy [Recovered/Resolved]
  - Off label use [Unknown]

NARRATIVE: CASE EVENT DATE: 20230301
